FAERS Safety Report 11512023 (Version 2)
Quarter: 2015Q4

REPORT INFORMATION
  Report Type: Spontaneous
  Country: US (occurrence: US)
  Receive Date: 20150916
  Receipt Date: 20151118
  Transmission Date: 20160304
  Serious: Yes (Hospitalization)
  Sender: FDA-Public Use
  Company Number: US-HOSPIRA-3004081

PATIENT
  Age: 19 Year
  Sex: Male
  Weight: 60.7 kg

DRUGS (6)
  1. DEXAMETHASONE. [Suspect]
     Active Substance: DEXAMETHASONE
     Indication: ANAPLASTIC LARGE CELL LYMPHOMA T- AND NULL-CELL TYPES
     Dosage: CYCLICAL, ON DAYS 1 TO 5
     Route: 048
     Dates: start: 20140705, end: 20140709
  2. CYCLOPHOSPHAMIDE. [Suspect]
     Active Substance: CYCLOPHOSPHAMIDE
     Indication: ANAPLASTIC LARGE CELL LYMPHOMA T- AND NULL-CELL TYPES
     Dosage: OVER 15 TO 30 MINUTES ON DAYS 1 TO 5
     Route: 042
     Dates: start: 20140705, end: 20140709
  3. DOXORUBICIN HYDROCHLORIDE. [Suspect]
     Active Substance: DOXORUBICIN HYDROCHLORIDE
     Indication: ANAPLASTIC LARGE CELL LYMPHOMA T- AND NULL-CELL TYPES
     Dosage: OVER 1 TO 15 MINUTES ON DAYS 4 AND 5
     Route: 042
     Dates: start: 20140705, end: 20140709
  4. CALCIUM FOLINATE [Suspect]
     Active Substance: LEUCOVORIN CALCIUM
     Indication: ANAPLASTIC LARGE-CELL LYMPHOMA
     Dosage: UNK
     Route: 042
     Dates: start: 20140504, end: 20140826
  5. METHOTREXATE [Suspect]
     Active Substance: METHOTREXATE
     Indication: ANAPLASTIC LARGE CELL LYMPHOMA T- AND NULL-CELL TYPES
     Dosage: OVER 3 HOURS ON DAY 1
     Route: 042
     Dates: start: 20140705, end: 20140705
  6. CRIZOTINIB [Concomitant]
     Active Substance: CRIZOTINIB
     Indication: ANAPLASTIC LARGE CELL LYMPHOMA T- AND NULL-CELL TYPES
     Dosage: CYCLICAL, ON DAYS 1 TO 21
     Route: 048
     Dates: start: 20140705, end: 20140715

REACTIONS (2)
  - Stomatitis [Recovered/Resolved]
  - Tracheal inflammation [Recovered/Resolved]

NARRATIVE: CASE EVENT DATE: 20140715
